FAERS Safety Report 8070691-5 (Version None)
Quarter: 2012Q1

REPORT INFORMATION
  Report Type: 
  Country: None (occurrence: None)
  Receive Date: 20120125
  Receipt Date: 20120120
  Transmission Date: 20120608
  Serious: Yes (Hospitalization, Other)
  Sender: FDA-Public Use
  Company Number: PHHO2011CZ04461

PATIENT
  Sex: Female
  Weight: 58 kg

DRUGS (4)
  1. AFINITOR [Suspect]
     Indication: METASTATIC RENAL CELL CARCINOMA
     Dosage: 10 MG
     Route: 048
     Dates: start: 20090916
  2. AFINITOR [Suspect]
     Dosage: 10 MG
     Route: 048
     Dates: start: 20090930, end: 20110720
  3. AVASTIN [Suspect]
     Indication: METASTATIC RENAL CELL CARCINOMA
     Dosage: 650 MG, UNK
     Route: 048
     Dates: start: 20090916
  4. AVASTIN [Suspect]
     Dosage: 580 MG, UNK
     Route: 048
     Dates: start: 20110930, end: 20110707

REACTIONS (1)
  - HYPERCALCAEMIA [None]
